FAERS Safety Report 6316057-7 (Version None)
Quarter: 2009Q3

REPORT INFORMATION
  Report Type: 
  Country: None (occurrence: None)
  Receive Date: 20090820
  Receipt Date: 20090813
  Transmission Date: 20100115
  Serious: Yes (Hospitalization)
  Sender: FDA-Public Use
  Company Number: IT-JNJFOC-20090803845

PATIENT
  Sex: Male

DRUGS (4)
  1. SERENASE [Suspect]
     Indication: DRUG USE FOR UNKNOWN INDICATION
     Route: 048
  2. VENLAFAXINE HCL [Suspect]
     Indication: DRUG USE FOR UNKNOWN INDICATION
     Route: 048
  3. DIAMICRON [Concomitant]
     Route: 065
  4. LORAZEPAM [Concomitant]
     Route: 065

REACTIONS (4)
  - ASTHENIA [None]
  - BALANCE DISORDER [None]
  - HYPERTENSION [None]
  - PARKINSONISM [None]
